FAERS Safety Report 9657845 (Version 1)
Quarter: 2013Q4

REPORT INFORMATION
  Report Type: Spontaneous
  Country: US (occurrence: US)
  Receive Date: 20131030
  Receipt Date: 20131030
  Transmission Date: 20140711
  Serious: Yes (Other)
  Sender: FDA-Public Use
  Company Number: US-PFIZER INC-2013306554

PATIENT
  Sex: Female

DRUGS (4)
  1. AZITHROMYCIN [Suspect]
     Dosage: UNK
     Route: 064
  2. PIPERACILLIN/TAZOBACTAM [Suspect]
     Dosage: UNK
     Route: 064
  3. ACYCLOVIR [Suspect]
     Dosage: UNK
     Route: 064
  4. FOSCARNET [Suspect]
     Dosage: UNK
     Route: 064

REACTIONS (2)
  - Maternal exposure during pregnancy [Unknown]
  - Schizencephaly [Unknown]
